FAERS Safety Report 10253254 (Version 1)
Quarter: 2014Q2

REPORT INFORMATION
  Report Type: Spontaneous
  Country: AT (occurrence: AT)
  Receive Date: 20140623
  Receipt Date: 20140623
  Transmission Date: 20141212
  Serious: Yes (Life-Threatening, Hospitalization)
  Sender: FDA-Public Use
  Company Number: AT-BAYER-2014-088273

PATIENT
  Age: 64 Year
  Sex: Female
  Weight: 110 kg

DRUGS (8)
  1. AVELOX 400 MG - INFUSIONSL?SUNG [Suspect]
     Indication: PNEUMONIA
     Dosage: 400 MG, QD
  2. AVELOX 400 MG - INFUSIONSL?SUNG [Suspect]
     Indication: SEPTIC SHOCK
  3. LEVOFLOXACIN [Suspect]
     Indication: SEPTIC SHOCK
     Dosage: 500 MG, QD
     Dates: end: 20140521
  4. LEVOFLOXACIN [Suspect]
     Indication: PNEUMONIA
  5. NORADRENALIN [Concomitant]
     Dosage: 6 ?G/KG, UNK
  6. PIPERACILLIN SODIUM [Concomitant]
     Indication: SEPTIC SHOCK
     Dosage: 2 G, TID
  7. TAZOBACTAM SODIUM [Concomitant]
     Indication: SEPTIC SHOCK
  8. LINEZOLID [Concomitant]
     Indication: SEPTIC SHOCK
     Dosage: 600 MG, BID

REACTIONS (3)
  - Blood creatine phosphokinase increased [Recovering/Resolving]
  - Pyrexia [Not Recovered/Not Resolved]
  - Rhabdomyolysis [Not Recovered/Not Resolved]
